FAERS Safety Report 21792772 (Version 7)
Quarter: 2023Q2

REPORT INFORMATION
  Report Type: Report from Study
  Country: US (occurrence: US)
  Receive Date: 20221229
  Receipt Date: 20230516
  Transmission Date: 20230721
  Serious: No
  Sender: FDA-Public Use
  Company Number: US-002147023-NVSC2022US300302

PATIENT
  Sex: Female

DRUGS (2)
  1. ENTRESTO [Suspect]
     Active Substance: SACUBITRIL\VALSARTAN
     Indication: Product used for unknown indication
     Dosage: 1 DOSAGE FORM, BID
     Route: 048
  2. LASIX [Concomitant]
     Active Substance: FUROSEMIDE
     Indication: Fluid retention
     Dosage: UNK (AS NEEDED)
     Route: 065

REACTIONS (15)
  - Dizziness [Unknown]
  - Hypophagia [Unknown]
  - Pyrexia [Unknown]
  - Chills [Unknown]
  - Asthma [Unknown]
  - Ageusia [Unknown]
  - Weight fluctuation [Unknown]
  - Skin disorder [Unknown]
  - COVID-19 [Unknown]
  - Dyspnoea [Unknown]
  - Cough [Unknown]
  - Nasopharyngitis [Unknown]
  - Nasal congestion [Unknown]
  - Dysphonia [Unknown]
  - Rash [Unknown]
